FAERS Safety Report 17541713 (Version 1)
Quarter: 2020Q1

REPORT INFORMATION
  Report Type: Spontaneous
  Country: CA (occurrence: CA)
  Receive Date: 20200314
  Receipt Date: 20200314
  Transmission Date: 20200409
  Serious: Yes (Other)
  Sender: FDA-Public Use
  Company Number: CA-ABBVIE-18K-028-2498772-00

PATIENT
  Sex: Male

DRUGS (3)
  1. METHOTREXATE. [Suspect]
     Active Substance: METHOTREXATE
     Indication: PRODUCT USED FOR UNKNOWN INDICATION
     Route: 058
     Dates: start: 201610, end: 201702
  2. HUMIRA [Suspect]
     Active Substance: ADALIMUMAB
     Indication: PRODUCT USED FOR UNKNOWN INDICATION
     Route: 058
     Dates: start: 201610, end: 201702
  3. CORTIMENT [HYDROCORTISONE] [Suspect]
     Active Substance: HYDROCORTISONE
     Indication: PRODUCT USED FOR UNKNOWN INDICATION
     Route: 065
     Dates: start: 201805

REACTIONS (9)
  - Rectal haemorrhage [Unknown]
  - Product use issue [Unknown]
  - Off label use [Unknown]
  - Crohn^s disease [Unknown]
  - Impaired quality of life [Unknown]
  - Diarrhoea [Unknown]
  - Haematochezia [Unknown]
  - Abdominal pain [Unknown]
  - Drug ineffective [Unknown]
